FAERS Safety Report 7460468-3 (Version None)
Quarter: 2011Q2

REPORT INFORMATION
  Report Type: 
  Country: None (occurrence: None)
  Receive Date: 20110505
  Receipt Date: 20110430
  Transmission Date: 20111010
  Serious: Yes (Hospitalization)
  Sender: FDA-Public Use
  Company Number: US-ABBOTT-11P-163-0723129-00

PATIENT
  Age: 31 Year
  Sex: Male

DRUGS (2)
  1. UNKNOWN MIGRAINE MEDICATION [Concomitant]
     Indication: MIGRAINE
  2. HUMIRA [Suspect]
     Indication: PSORIASIS
     Dates: start: 20101203, end: 20110301

REACTIONS (2)
  - BRAIN OEDEMA [None]
  - MENINGITIS [None]
